FAERS Safety Report 9407621 (Version 2)
Quarter: 2013Q3

REPORT INFORMATION
  Report Type: Spontaneous
  Country: US (occurrence: US)
  Receive Date: 20130718
  Receipt Date: 20130725
  Transmission Date: 20140515
  Serious: No
  Sender: FDA-Public Use
  Company Number: US-TEVA-419932USA

PATIENT
  Age: 45 Year
  Sex: Female
  Weight: 74.91 kg

DRUGS (2)
  1. PLAN B ONE-STEP [Suspect]
     Indication: POST COITAL CONTRACEPTION
     Dosage: 1.5 MILLIGRAM DAILY;
     Route: 048
     Dates: start: 20130628, end: 20130628
  2. LOESTRIN [Suspect]
     Indication: MENSTRUATION IRREGULAR
     Dates: start: 20130708

REACTIONS (1)
  - Menstruation irregular [Recovered/Resolved]
